FAERS Safety Report 15603396 (Version 2)
Quarter: 2019Q1

REPORT INFORMATION
  Report Type: Report from Study
  Country: CA (occurrence: CA)
  Receive Date: 20181109
  Receipt Date: 20190129
  Transmission Date: 20190417
  Serious: Yes (Other)
  Sender: FDA-Public Use
  Company Number: CA-JNJFOC-20180918812

PATIENT
  Age: 69 Year
  Sex: Female
  Weight: 86 kg

DRUGS (6)
  1. DENOSUMAB [Concomitant]
     Active Substance: DENOSUMAB
     Route: 065
  2. VITAMIN D [Concomitant]
     Active Substance: CHOLECALCIFEROL
     Route: 065
  3. VITAMIN B12 [Concomitant]
     Active Substance: CYANOCOBALAMIN
     Route: 050
  4. POTASSIUM [Concomitant]
     Active Substance: POTASSIUM
     Route: 065
  5. STELARA [Suspect]
     Active Substance: USTEKINUMAB
     Indication: CROHN^S DISEASE
     Dosage: STRENGTH = 90 MG
     Route: 058
     Dates: start: 20170627
  6. PANTOPRAZOLE [Concomitant]
     Active Substance: PANTOPRAZOLE
     Route: 048

REACTIONS (6)
  - Anastomotic haemorrhage [Not Recovered/Not Resolved]
  - Intestinal resection [Unknown]
  - Drug effect decreased [Unknown]
  - Anaemia [Not Recovered/Not Resolved]
  - Haematochezia [Unknown]
  - Diarrhoea [Unknown]

NARRATIVE: CASE EVENT DATE: 20181003
